FAERS Safety Report 8192029-5 (Version None)
Quarter: 2012Q1

REPORT INFORMATION
  Report Type: 
  Country: None (occurrence: None)
  Receive Date: 20120307
  Receipt Date: 20120305
  Transmission Date: 20120608
  Serious: Yes (Death, Other)
  Sender: FDA-Public Use
  Company Number: PHHY2012AR019241

PATIENT
  Sex: Male

DRUGS (1)
  1. TRILEPTAL [Suspect]

REACTIONS (3)
  - DEATH [None]
  - SYNCOPE [None]
  - MALAISE [None]
